FAERS Safety Report 9848847 (Version 1)
Quarter: 2014Q1

REPORT INFORMATION
  Report Type: Spontaneous
  Country: US (occurrence: None)
  Receive Date: 20140124
  Receipt Date: 20140124
  Transmission Date: 20141002
  Serious: Yes (Life-Threatening, Hospitalization)
  Sender: FDA-Public Use
  Company Number: None

PATIENT
  Age: 77 Year
  Sex: Male
  Weight: 87 kg

DRUGS (14)
  1. XARELTO [Suspect]
     Indication: POST PROCEDURAL PULMONARY EMBOLISM
  2. XARELTO [Suspect]
     Indication: DEEP VEIN THROMBOSIS POSTOPERATIVE
  3. SIMVASTATIN [Concomitant]
  4. ACYCLOVIR [Concomitant]
  5. FLEXERIL [Concomitant]
  6. COLACE [Concomitant]
  7. NEURONTIN [Concomitant]
  8. IMDUR [Concomitant]
  9. LISINOPRIL [Concomitant]
  10. METOPROLOL [Concomitant]
  11. NITROGLYCERIN [Concomitant]
  12. HYDROCODONE [Concomitant]
  13. PANTOPRAZOLE [Concomitant]
  14. XARELTO [Concomitant]

REACTIONS (4)
  - Gastrointestinal haemorrhage [None]
  - Haemoglobin decreased [None]
  - Hypotension [None]
  - Duodenal stenosis [None]
